FAERS Safety Report 7537441-X (Version None)
Quarter: 2011Q2

REPORT INFORMATION
  Report Type: 
  Country: None (occurrence: None)
  Receive Date: 20110603
  Receipt Date: 20110518
  Transmission Date: 20111010
  Serious: Yes (Death, Hospitalization)
  Sender: FDA-Public Use
  Company Number: 2011MA006130

PATIENT
  Age: 37 Year
  Sex: Male

DRUGS (3)
  1. CYCLOPHOSPHAMIDE [Concomitant]
  2. FLUDARABINE PHOSPHATE [Suspect]
     Indication: STEM CELL TRANSPLANT
  3. CASPOFUNGIN ACETATE [Concomitant]

REACTIONS (4)
  - SEPSIS [None]
  - PATHOGEN RESISTANCE [None]
  - NEUTROPENIA [None]
  - FUNGAL TEST POSITIVE [None]
